FAERS Safety Report 17125705 (Version 8)
Quarter: 2021Q1

REPORT INFORMATION
  Report Type: Report from Study
  Country: US (occurrence: US)
  Receive Date: 20191208
  Receipt Date: 20210116
  Transmission Date: 20210419
  Serious: No
  Sender: FDA-Public Use
  Company Number: NVSC2019US061299

PATIENT
  Age: 77 Year
  Sex: Female

DRUGS (2)
  1. BEOVU [Suspect]
     Active Substance: BROLUCIZUMAB-DBLL
     Indication: NEOVASCULAR AGE-RELATED MACULAR DEGENERATION
     Dosage: UNK
     Route: 047
     Dates: start: 20191202
  2. BEOVU [Suspect]
     Active Substance: BROLUCIZUMAB-DBLL
     Dosage: UNK
     Route: 047
     Dates: start: 20200609

REACTIONS (8)
  - Oscillopsia [Recovering/Resolving]
  - Photopsia [Unknown]
  - Visual impairment [Recovered/Resolved]
  - Metamorphopsia [Recovering/Resolving]
  - Vision blurred [Recovering/Resolving]
  - Intra-ocular injection complication [Unknown]
  - Therapeutic product effect incomplete [Unknown]
  - Deposit eye [Not Recovered/Not Resolved]

NARRATIVE: CASE EVENT DATE: 20191203
